FAERS Safety Report 19503901 (Version 5)
Quarter: 2022Q2

REPORT INFORMATION
  Report Type: Spontaneous
  Country: JP (occurrence: JP)
  Receive Date: 20210707
  Receipt Date: 20220516
  Transmission Date: 20220720
  Serious: Yes (Death, Hospitalization)
  Sender: FDA-Public Use
  Company Number: JP-ELI_LILLY_AND_COMPANY-JP202106015023

PATIENT
  Age: 67 Year
  Sex: Male

DRUGS (15)
  1. ADCIRCA [Suspect]
     Active Substance: TADALAFIL
     Indication: Pulmonary arterial hypertension
     Dosage: 20 MG, BID
     Route: 065
     Dates: start: 20191210
  2. UPTRAVI [Suspect]
     Active Substance: SELEXIPAG
     Indication: Pulmonary arterial hypertension
     Dosage: 0.2 MG, BID
     Route: 048
     Dates: start: 20210516, end: 20210524
  3. UPTRAVI [Suspect]
     Active Substance: SELEXIPAG
     Dosage: 0.4 MG, BID
     Route: 048
     Dates: start: 20210525, end: 20210531
  4. UPTRAVI [Suspect]
     Active Substance: SELEXIPAG
     Dosage: 0.2 MG, BID
     Route: 048
     Dates: start: 20210601, end: 20210607
  5. OPSUMIT [Concomitant]
     Active Substance: MACITENTAN
     Indication: Pulmonary arterial hypertension
     Dosage: 10 MG, UNKNOWN
     Route: 065
  6. METHIMAZOLE [Concomitant]
     Active Substance: METHIMAZOLE
     Indication: Basedow^s disease
     Dosage: 10 MG
     Dates: start: 20201210
  7. AZOSEMIDE [Concomitant]
     Active Substance: AZOSEMIDE
     Indication: Polyuria
     Dosage: 30 MG
     Dates: start: 20210501, end: 202106
  8. AZOSEMIDE [Concomitant]
     Active Substance: AZOSEMIDE
     Dosage: 60 MG
     Dates: start: 20210611, end: 20210626
  9. PIRFENIDONE [Concomitant]
     Active Substance: PIRFENIDONE
     Indication: Idiopathic pulmonary fibrosis
     Dosage: 600 MG, UNKNOWN
     Dates: start: 20200818
  10. FUROSEMIDE [Concomitant]
     Active Substance: FUROSEMIDE
     Indication: Polyuria
     Dosage: 10 MG
     Dates: start: 20191210
  11. FUROSEMIDE [Concomitant]
     Active Substance: FUROSEMIDE
     Dosage: UNK
  12. CODEINE PHOSPHATE ANHYDROUS [Concomitant]
     Active Substance: CODEINE PHOSPHATE ANHYDROUS
     Indication: Respiratory symptom
     Dosage: 60 MG
     Dates: start: 20210302
  13. SAMSCA [Concomitant]
     Active Substance: TOLVAPTAN
     Indication: Polyuria
     Dosage: UNK
     Dates: start: 20210428
  14. PREDONINE [Concomitant]
     Active Substance: PREDNISOLONE
     Indication: Basedow^s disease
     Dosage: 5 MG
     Dates: start: 20191210
  15. BERAPROST [Concomitant]
     Active Substance: BERAPROST
     Indication: Product used for unknown indication

REACTIONS (2)
  - Pneumonia aspiration [Fatal]
  - Hypoxia [Not Recovered/Not Resolved]

NARRATIVE: CASE EVENT DATE: 20210527
